FAERS Safety Report 11227983 (Version 1)
Quarter: 2015Q2

REPORT INFORMATION
  Report Type: Spontaneous
  Country: BE (occurrence: None)
  Receive Date: 20150626
  Receipt Date: 20150626
  Transmission Date: 20150821
  Serious: Yes (Death, Hospitalization, Other)
  Sender: FDA-Public Use
  Company Number: K201414249

PATIENT
  Age: 37 Year
  Sex: Male

DRUGS (3)
  1. LAMIVUDINE (LAMIVUDINE) [Suspect]
     Active Substance: LAMIVUDINE
     Indication: HIV INFECTION
  2. LOPINAVIR AND RITONAVIR [Suspect]
     Active Substance: LOPINAVIR\RITONAVIR
     Indication: HIV INFECTION
  3. TENOFOVIR DISOPROXIL FUMARATE (TENOFOVIR DISOPROXIL FUMARATE) UNKNOWN [Suspect]
     Active Substance: TENOFOVIR DISOPROXIL FUMARATE
     Indication: HIV INFECTION
     Dates: start: 200807

REACTIONS (13)
  - Blood creatine phosphokinase increased [None]
  - Mycobacterium avium complex infection [None]
  - Pyrexia [None]
  - Weight decreased [None]
  - Headache [None]
  - Intracranial pressure increased [None]
  - Status epilepticus [None]
  - Cryptococcosis [None]
  - Epilepsy [None]
  - Immune reconstitution inflammatory syndrome [None]
  - Skin lesion [None]
  - Brain oedema [None]
  - Blood lactate dehydrogenase increased [None]
